FAERS Safety Report 13909005 (Version 4)
Quarter: 2018Q3

REPORT INFORMATION
  Report Type: Report from Study
  Country: DE (occurrence: DE)
  Receive Date: 20170828
  Receipt Date: 20180726
  Transmission Date: 20181010
  Serious: Yes (Hospitalization)
  Sender: FDA-Public Use
  Company Number: DE-ROCHE-1722910

PATIENT
  Sex: Female

DRUGS (5)
  1. PANTOPRAZOL [Concomitant]
     Active Substance: PANTOPRAZOLE SODIUM
  2. RITUXIMAB. [Suspect]
     Active Substance: RITUXIMAB
     Indication: RHEUMATOID ARTHRITIS
     Dosage: ON 12/AUG/2015, SHE RECEIVED HER MOST RECENT DOSE OF RITUXIMAB PRIOR TO SERIOUS ADVERSE EVENT.?NEXT
     Route: 042
  3. METHOTREXAT [Suspect]
     Active Substance: METHOTREXATE
     Indication: RHEUMATOID ARTHRITIS
     Route: 065
  4. PREDNISOLON [Concomitant]
     Active Substance: PREDNISOLONE
  5. CELEBREX [Concomitant]
     Active Substance: CELECOXIB

REACTIONS (3)
  - Joint prosthesis user [Recovered/Resolved]
  - Limb discomfort [Unknown]
  - Joint prosthesis user [Recovered/Resolved]

NARRATIVE: CASE EVENT DATE: 20160107
